FAERS Safety Report 5286021-8 (Version None)
Quarter: 2007Q2

REPORT INFORMATION
  Report Type: 
  Country: None (occurrence: None)
  Receive Date: 20070404
  Receipt Date: 20070321
  Transmission Date: 20071010
  Serious: Yes (Hospitalization)
  Sender: FDA-Public Use
  Company Number: FRWYE146613JUL06

PATIENT
  Age: 53 Year
  Sex: Female
  Weight: 70 kg

DRUGS (1)
  1. ENBREL [Suspect]
     Indication: RHEUMATOID ARTHRITIS
     Dosage: UNKNOWN
     Route: 058
     Dates: start: 20040201, end: 20061120

REACTIONS (6)
  - BORRELIA BURGDORFERI SEROLOGY POSITIVE [None]
  - EPSTEIN-BARR VIRUS TEST POSITIVE [None]
  - MACULAR OEDEMA [None]
  - OCULAR HYPERTENSION [None]
  - OPTIC NEURITIS [None]
  - UVEITIS [None]
